FAERS Safety Report 22623682 (Version 2)
Quarter: 2024Q3

REPORT INFORMATION
  Report Type: Spontaneous
  Country: US (occurrence: US)
  Receive Date: 20230621
  Receipt Date: 20240704
  Transmission Date: 20241016
  Serious: No
  Sender: SANOFI AVENTIS
  Company Number: US-SA-SAC20230619000346

PATIENT
  Age: 2 Year
  Sex: Male

DRUGS (16)
  1. DUPIXENT [Suspect]
     Active Substance: DUPILUMAB
     Indication: Dermatitis allergic
     Dosage: 200 MG: Q4W
     Route: 058
     Dates: start: 20221020
  2. DUPIXENT [Suspect]
     Active Substance: DUPILUMAB
     Indication: Dermatitis atopic
     Dosage: 300 MG, Q4W
     Route: 058
     Dates: start: 20230620
  3. AZITHROMYCIN [Concomitant]
     Active Substance: AZITHROMYCIN
  4. CETIRIZINE [Concomitant]
     Active Substance: CETIRIZINE HYDROCHLORIDE
  5. EPINEPHRINE [Concomitant]
     Active Substance: EPINEPHRINE
  6. IBUPROFEN [Concomitant]
     Active Substance: IBUPROFEN
  7. MOMETASONE [Concomitant]
     Active Substance: MOMETASONE
  8. MOMETASONE [Concomitant]
     Active Substance: MOMETASONE
  9. PREDNISOLONE [Concomitant]
     Active Substance: PREDNISOLONE
  10. PREDNISOLONE [Concomitant]
     Active Substance: PREDNISOLONE
  11. TACROLIMUS [Concomitant]
     Active Substance: TACROLIMUS
  12. SODIUM CHLORIDE [Concomitant]
     Active Substance: SODIUM CHLORIDE
  13. EPINEPHRINE [Concomitant]
     Active Substance: EPINEPHRINE
  14. EPINEPHRINE [Concomitant]
     Active Substance: EPINEPHRINE
  15. BETAMETHASONE DIPROPIONATE [Concomitant]
     Active Substance: BETAMETHASONE DIPROPIONATE
  16. ACETAMINOPHEN [Concomitant]
     Active Substance: ACETAMINOPHEN

REACTIONS (6)
  - Sleep disorder [Not Recovered/Not Resolved]
  - Discomfort [Unknown]
  - Eczema [Unknown]
  - Rash [Unknown]
  - Intentional product use issue [Unknown]
  - Drug ineffective [Unknown]

NARRATIVE: CASE EVENT DATE: 20230410
